FAERS Safety Report 7936047-8 (Version None)
Quarter: 2011Q4

REPORT INFORMATION
  Report Type: 
  Country: None (occurrence: None)
  Receive Date: 20111123
  Receipt Date: 20111117
  Transmission Date: 20120403
  Serious: Yes (Other)
  Sender: FDA-Public Use
  Company Number: US-US-EMD SERONO, INC.-7097217

PATIENT
  Sex: Male

DRUGS (1)
  1. REBIF [Suspect]
     Indication: MULTIPLE SCLEROSIS
     Route: 058
     Dates: start: 20110802

REACTIONS (8)
  - INSOMNIA [None]
  - LACRIMATION INCREASED [None]
  - RHINORRHOEA [None]
  - MULTIPLE SCLEROSIS RELAPSE [None]
  - OPHTHALMOPLEGIA [None]
  - INJECTION SITE ERYTHEMA [None]
  - BLOOD POTASSIUM INCREASED [None]
  - COUGH [None]
